FAERS Safety Report 9951210 (Version 1)
Quarter: 2014Q1

REPORT INFORMATION
  Report Type: Spontaneous
  Country: US (occurrence: US)
  Receive Date: 20140304
  Receipt Date: 20140304
  Transmission Date: 20141002
  Serious: No
  Sender: FDA-Public Use
  Company Number: US-PFIZER INC-2014060889

PATIENT
  Sex: Female

DRUGS (1)
  1. LYRICA [Suspect]
     Indication: CEREBROVASCULAR ACCIDENT
     Dosage: UNK

REACTIONS (2)
  - Aggression [Unknown]
  - Swelling face [Unknown]
